FAERS Safety Report 4448872-9 (Version None)
Quarter: 2004Q3

REPORT INFORMATION
  Report Type: 
  Country: None (occurrence: None)
  Receive Date: 20040909
  Receipt Date: 20040819
  Transmission Date: 20050211
  Serious: Yes (Death, Other)
  Sender: FDA-Public Use
  Company Number: US_0408104984

PATIENT
  Sex: Male
  Weight: 136 kg

DRUGS (1)
  1. HUMULIN 70/30 [Suspect]
     Indication: DIABETES MELLITUS
     Dates: start: 19940101

REACTIONS (6)
  - CEREBROVASCULAR ACCIDENT [None]
  - DEMENTIA ALZHEIMER'S TYPE [None]
  - INTESTINAL OBSTRUCTION [None]
  - MEDICATION ERROR [None]
  - MYOCARDIAL INFARCTION [None]
  - SENILE DEMENTIA [None]
